FAERS Safety Report 15344884 (Version 4)
Quarter: 2019Q3

REPORT INFORMATION
  Report Type: Report from Study
  Country: US (occurrence: US)
  Receive Date: 20180903
  Receipt Date: 20190723
  Transmission Date: 20191004
  Serious: Yes (Life-Threatening, Hospitalization, Other)
  Sender: FDA-Public Use
  Company Number: US-TAKEDA-2018TUS021595

PATIENT
  Age: 59 Year
  Sex: Male

DRUGS (3)
  1. ALLOPURINOL. [Suspect]
     Active Substance: ALLOPURINOL
     Indication: GOUT
     Dosage: 300 MILLIGRAM, BID
     Route: 065
     Dates: start: 20180523, end: 201808
  2. VEDOLIZUMAB [Suspect]
     Active Substance: VEDOLIZUMAB
     Indication: CROHN^S DISEASE
     Dosage: 300 MILLIGRAM
     Route: 042
     Dates: start: 201609
  3. ALLOPURINOL. [Suspect]
     Active Substance: ALLOPURINOL
     Dosage: 100 MILLIGRAM, QD
     Route: 065
     Dates: start: 201808

REACTIONS (30)
  - Asthenia [Unknown]
  - Apparent death [Unknown]
  - Large intestine polyp [Unknown]
  - Gastrointestinal disorder [Not Recovered/Not Resolved]
  - Chronic obstructive pulmonary disease [Unknown]
  - Weight decreased [Unknown]
  - Hepatitis B antibody negative [Not Recovered/Not Resolved]
  - Dizziness [Unknown]
  - Feeling abnormal [Unknown]
  - Red blood cell count decreased [Unknown]
  - Crohn^s disease [Unknown]
  - Anaemia [Not Recovered/Not Resolved]
  - Overdose [Unknown]
  - Nausea [Unknown]
  - Diverticulitis [Unknown]
  - Back pain [Not Recovered/Not Resolved]
  - Renal impairment [Unknown]
  - Haematocrit decreased [Unknown]
  - Lethargy [Unknown]
  - Dyspnoea [Recovering/Resolving]
  - Transcription medication error [Unknown]
  - Mesenteric panniculitis [Unknown]
  - Gout [Not Recovered/Not Resolved]
  - Renal disorder [Unknown]
  - Renal pain [Unknown]
  - Sluggishness [Unknown]
  - Fatigue [Unknown]
  - Intestinal sepsis [Unknown]
  - Gastrointestinal mucosal exfoliation [Unknown]
  - Accidental overdose [Unknown]

NARRATIVE: CASE EVENT DATE: 2016
